FAERS Safety Report 7011360-X (Version None)
Quarter: 2010Q3

REPORT INFORMATION
  Report Type: 
  Country: None (occurrence: None)
  Receive Date: 20100923
  Receipt Date: 20090116
  Transmission Date: 20110219
  Serious: No
  Sender: FDA-Public Use
  Company Number: US-WYE-H07760009

PATIENT
  Age: 74 Year
  Sex: Female

DRUGS (1)
  1. PREMARIN [Suspect]
     Indication: VULVOVAGINAL DRYNESS
     Dosage: 1 APPLICATION 2-3 TIMES WEEKLY
     Route: 067
     Dates: start: 20080101

REACTIONS (1)
  - URINARY TRACT INFECTION [None]
